FAERS Safety Report 20194969 (Version 1)
Quarter: 2021Q4

REPORT INFORMATION
  Report Type: Spontaneous
  Country: US (occurrence: None)
  Receive Date: 20211216
  Receipt Date: 20211216
  Transmission Date: 20220303
  Serious: Yes (Hospitalization)
  Sender: FDA-Public Use
  Company Number: None

PATIENT
  Sex: Female

DRUGS (13)
  1. ACTEMRA [Suspect]
     Active Substance: TOCILIZUMAB
     Indication: Rheumatoid arthritis
     Route: 058
     Dates: start: 20210713
  2. ASPIRIN LOW [Concomitant]
  3. FOLIC ACID [Concomitant]
  4. GLUCOSAMINE [Concomitant]
  5. IRON TAB [Concomitant]
  6. LISINOP/HCTZ [Concomitant]
  7. METABO-STYLE [Concomitant]
  8. METHOTREXATE [Concomitant]
     Active Substance: METHOTREXATE
  9. MULTI-VIT/TAB MINERALS [Concomitant]
  10. OMEGA-3 ACIDS [Concomitant]
     Active Substance: OMEGA-3 FATTY ACIDS
  11. PREDNISONE [Concomitant]
  12. TUMERIC [Concomitant]
  13. YEAST EXTRCT LIQ [Concomitant]

REACTIONS (1)
  - Hospitalisation [None]
